FAERS Safety Report 13516491 (Version 1)
Quarter: 2017Q2

REPORT INFORMATION
  Report Type: Spontaneous
  Country: DE (occurrence: DE)
  Receive Date: 20170505
  Receipt Date: 20170505
  Transmission Date: 20170830
  Serious: Yes (Other)
  Sender: FDA-Public Use
  Company Number: PHHY2017DE063404

PATIENT
  Sex: Female
  Weight: 45 kg

DRUGS (2)
  1. SANDIMMUN [Suspect]
     Active Substance: CYCLOSPORINE
     Indication: PSORIATIC ARTHROPATHY
     Dosage: 200 MG, QD
     Route: 065
  2. SANDIMMUN [Suspect]
     Active Substance: CYCLOSPORINE
     Dosage: 100 MG, QD
     Route: 065

REACTIONS (3)
  - Product use in unapproved indication [Unknown]
  - Melanocytic naevus [Unknown]
  - Inappropriate schedule of drug administration [Unknown]
